FAERS Safety Report 24858901 (Version 2)
Quarter: 2025Q3

REPORT INFORMATION
  Report Type: Report from Study
  Country: US (occurrence: US)
  Receive Date: 20250118
  Receipt Date: 20250722
  Transmission Date: 20251020
  Serious: Yes (Hospitalization)
  Sender: ROCHE
  Company Number: US-ROCHE-10000179725

PATIENT
  Age: 79 Year
  Sex: Female

DRUGS (16)
  1. ACTEMRA [Suspect]
     Active Substance: TOCILIZUMAB
     Indication: Giant cell arteritis
     Dosage: INJECT 0.9ML (162MG) SUBCUTANEOUSLY EVERY 7 DAY(S)
     Route: 058
     Dates: start: 20250512
  2. ACTEMRA [Suspect]
     Active Substance: TOCILIZUMAB
     Dosage: INJECT 0.9ML (162MG) SUBCUTANEOUSLY EVERY 7 DAY(S)
     Route: 058
  3. AMLODIPINE BESYLATE [Concomitant]
     Active Substance: AMLODIPINE BESYLATE
  4. LOSARTAN POTASSIUM [Concomitant]
     Active Substance: LOSARTAN POTASSIUM
  5. METOPROLOL SUCCINATE [Concomitant]
     Active Substance: METOPROLOL SUCCINATE
  6. cephALEXin (KEFLEX) 500 mg capsule [Concomitant]
     Dosage: TAKE 1 CAPSULE (500 MG) BY MOUTH 4 TIMES A DAY FOR 7 DAYS.
     Route: 048
     Dates: start: 20250513, end: 20250520
  7. amLODIPine (NORVASC) 5 mg tablet [Concomitant]
     Route: 048
     Dates: start: 20250403
  8. losartan (COZAAR) 100 mg tablet [Concomitant]
     Indication: Hypertension
     Route: 048
     Dates: start: 20250403
  9. denosumab (PROLIA) 60 mg/ml. Syringe [Concomitant]
     Route: 058
  10. denosumab (PROLIA) 60 mg/ml. Syringe [Concomitant]
     Route: 058
     Dates: start: 20250411
  11. ondansetron (ZOFRAN ODT) 4 mg Tablet [Concomitant]
     Indication: Vomiting
     Dosage: DISSOLVE TABLET ON TOP OF TONGUE, THEN SWALLOW WITH SALIVA.
     Route: 048
     Dates: start: 20241017
  12. ondansetron (ZOFRAN ODT) 4 mg Tablet [Concomitant]
     Indication: Nausea
  13. triamcinolone acetonide (KENALOG) 0.1 % [Concomitant]
     Indication: Rash
     Route: 061
     Dates: start: 20240806
  14. Metoprolol succinate (TOPROL XL) 50 mg [Concomitant]
     Route: 048
     Dates: start: 20240716
  15. atorvastatin (LIPITOR) 80 mg, tablet [Concomitant]
     Route: 048
     Dates: start: 20240530
  16. cholecalciferol, Vitamin D3, 125 mcg, (5,000 unit) Capsule [Concomitant]
     Route: 048
     Dates: start: 20200213

REACTIONS (1)
  - Endocarditis [Not Recovered/Not Resolved]
